FAERS Safety Report 23411704 (Version 5)
Quarter: 2024Q1

REPORT INFORMATION
  Report Type: Report from Study
  Country: FR (occurrence: FR)
  Receive Date: 20240117
  Receipt Date: 20240313
  Transmission Date: 20240410
  Serious: Yes (Hospitalization)
  Sender: FDA-Public Use
  Company Number: FR-ROCHE-3483822

PATIENT
  Age: 42 Year
  Sex: Male

DRUGS (3)
  1. PACLITAXEL [Suspect]
     Active Substance: PACLITAXEL
     Indication: Non-small cell lung cancer
     Dosage: 200 MILLIGRAM/SQ. METER, Q3W, DATE OF LAST ADMINISTRATION OF STUDY TREATMENT 08-DEC-2023
     Route: 042
     Dates: start: 20231208, end: 20231208
  2. BEVACIZUMAB [Suspect]
     Active Substance: BEVACIZUMAB
     Indication: Non-small cell lung cancer
     Dosage: 15 MILLIGRAM/KILOGRAM, Q3W, DATE OF LAST ADMINISTRATION OF STUDY TREATMENT 08-DEC-2023
     Route: 042
     Dates: start: 20231208, end: 20231208
  3. ATEZOLIZUMAB [Concomitant]
     Active Substance: ATEZOLIZUMAB
     Indication: Non-small cell lung cancer
     Dosage: 1200 MILLIGRAM, Q3W, DATE OF LAST ADMINISTRATION OF STUDY TREATMENT 08-DEC-2023
     Route: 065
     Dates: start: 20231208, end: 20231208

REACTIONS (1)
  - Pulmonary haemorrhage [Recovered/Resolved]

NARRATIVE: CASE EVENT DATE: 20231226
